FAERS Safety Report 4708485-8 (Version None)
Quarter: 2005Q3

REPORT INFORMATION
  Report Type: 
  Country: None (occurrence: None)
  Receive Date: 20050707
  Receipt Date: 20050614
  Transmission Date: 20060218
  Serious: Yes (Hospitalization)
  Sender: FDA-Public Use
  Company Number: 200511192DE

PATIENT
  Age: 79 Year
  Sex: Female
  Weight: 63 kg

DRUGS (6)
  1. AMARYL [Suspect]
     Indication: DIABETES MELLITUS
     Route: 048
     Dates: start: 20050101
  2. ACTRAPID [Suspect]
     Indication: DIABETES MELLITUS
     Route: 058
     Dates: start: 20050603
  3. PROTAPHAN [Suspect]
     Indication: DIABETES MELLITUS
  4. INSULINS AND ANALOGUES [Suspect]
     Indication: DIABETES MELLITUS
     Dosage: DOSE: 8-8-8
     Route: 058
     Dates: start: 20050603
  5. GLUCOBAY [Concomitant]
     Indication: DIABETES MELLITUS
     Route: 048
  6. NITREGAMMA [Concomitant]
     Route: 048

REACTIONS (10)
  - DYSPHAGIA [None]
  - FALL [None]
  - HYPOGLYCAEMIA [None]
  - NEUROLOGICAL EXAMINATION ABNORMAL [None]
  - PARALYSIS [None]
  - SENSORY LOSS [None]
  - SHOCK HYPOGLYCAEMIC [None]
  - SPEECH DISORDER [None]
  - SURGERY [None]
  - VISUAL DISTURBANCE [None]
